FAERS Safety Report 5078555-6 (Version None)
Quarter: 2006Q3

REPORT INFORMATION
  Report Type: 
  Country: None (occurrence: None)
  Receive Date: 20060808
  Receipt Date: 20060725
  Transmission Date: 20061208
  Serious: Yes (Hospitalization)
  Sender: FDA-Public Use
  Company Number: MEDI-0004807

PATIENT
  Age: 66 Year
  Sex: Male

DRUGS (3)
  1. ETHYOL [Suspect]
     Dosage: SUBCUTANEOUS
     Route: 058
  2. RADIATION THERAPY [Concomitant]
  3. UNKNOWN CHEMOTHERAPY DRUG [Concomitant]

REACTIONS (7)
  - CHILLS [None]
  - CONDITION AGGRAVATED [None]
  - HYPOTENSION [None]
  - INJECTION SITE RASH [None]
  - PYREXIA [None]
  - TREMOR [None]
  - WHITE BLOOD CELL COUNT DECREASED [None]
